FAERS Safety Report 11897635 (Version 1)
Quarter: 2016Q1

REPORT INFORMATION
  Report Type: Spontaneous
  Country: GB (occurrence: GB)
  Receive Date: 20160108
  Receipt Date: 20160108
  Transmission Date: 20160526
  Serious: Yes (Other)
  Sender: FDA-Public Use
  Company Number: GB-AUROBINDO-AUR-APL-2015-12224

PATIENT
  Age: 51 Year
  Sex: Female
  Weight: 146.96 kg

DRUGS (1)
  1. AMOXICILLIN+CLAVULANIC ACID [Suspect]
     Active Substance: AMOXICILLIN\CLAVULANIC ACID
     Indication: CHOLECYSTITIS INFECTIVE
     Dosage: 625 MG, 3 TIMES A DAY
     Route: 048
     Dates: start: 20151218, end: 20151220

REACTIONS (8)
  - Faeces pale [Not Recovered/Not Resolved]
  - Dizziness [Unknown]
  - Yellow skin [Unknown]
  - Nausea [Not Recovered/Not Resolved]
  - Chromaturia [Not Recovered/Not Resolved]
  - Malaise [Unknown]
  - Jaundice [Not Recovered/Not Resolved]
  - Hepatic enzyme increased [Unknown]

NARRATIVE: CASE EVENT DATE: 20151218
